FAERS Safety Report 18090477 (Version 3)
Quarter: 2021Q1

REPORT INFORMATION
  Report Type: Spontaneous
  Country: US (occurrence: US)
  Receive Date: 20200730
  Receipt Date: 20210331
  Transmission Date: 20210419
  Serious: No
  Sender: FDA-Public Use
  Company Number: US-ROCHE-2648806

PATIENT
  Age: 28 Year
  Sex: Female

DRUGS (1)
  1. OCREVUS [Suspect]
     Active Substance: OCRELIZUMAB
     Indication: RELAPSING MULTIPLE SCLEROSIS
     Dosage: SUBSEQUENT DOSE ON 16/JUL/2020
     Route: 042
     Dates: start: 201912

REACTIONS (2)
  - Lymphocyte count decreased [Unknown]
  - COVID-19 [Recovered/Resolved]
